FAERS Safety Report 9604638 (Version 1)
Quarter: 2013Q4

REPORT INFORMATION
  Report Type: Spontaneous
  Country: SG (occurrence: SG)
  Receive Date: 20131008
  Receipt Date: 20131008
  Transmission Date: 20140711
  Serious: Yes (Other)
  Sender: FDA-Public Use
  Company Number: SG-MALLINCKRODT-T201304492

PATIENT
  Sex: Female

DRUGS (2)
  1. ULTRA TECHNEKOW FM [Suspect]
     Indication: PRODUCT USED FOR UNKNOWN INDICATION
  2. CEFTRIAXONE [Suspect]
     Indication: PRODUCT USED FOR UNKNOWN INDICATION
     Route: 042

REACTIONS (3)
  - Rash maculo-papular [Unknown]
  - Pyrexia [Unknown]
  - Liver function test abnormal [Unknown]
